FAERS Safety Report 19144813 (Version 1)
Quarter: 2021Q2

REPORT INFORMATION
  Report Type: Spontaneous
  Country: US (occurrence: US)
  Receive Date: 20210415
  Receipt Date: 20210415
  Transmission Date: 20210717
  Serious: No
  Sender: FDA-Public Use
  Company Number: None

PATIENT
  Age: 9 Year
  Sex: Female
  Weight: 36 kg

DRUGS (1)
  1. CHINA GEL [Suspect]
     Active Substance: HERBALS
     Indication: MYALGIA
     Dosage: ?          QUANTITY:1 OUNCE(S);?
     Route: 061
     Dates: start: 20210415, end: 20210415

REACTIONS (4)
  - Skin burning sensation [None]
  - Skin irritation [None]
  - Pain of skin [None]
  - Erythema [None]

NARRATIVE: CASE EVENT DATE: 20210415
